FAERS Safety Report 4667064-1 (Version None)
Quarter: 2005Q2

REPORT INFORMATION
  Report Type: 
  Country: None (occurrence: None)
  Receive Date: 20050520
  Receipt Date: 20050202
  Transmission Date: 20051028
  Serious: Yes (Other)
  Sender: FDA-Public Use
  Company Number: PHEH2005US01581

PATIENT
  Age: 65 Year
  Sex: Female

DRUGS (3)
  1. AREDIA [Suspect]
     Indication: MULTIPLE MYELOMA
     Dosage: 90 MG, QMO
     Dates: start: 20011201, end: 20040901
  2. EPOGEN [Concomitant]
  3. DEXAMETHASONE [Concomitant]
     Dosage: 40MG FOR 4 DAYS 3OUT OF 4 WEEKS
     Dates: start: 20011101, end: 20020401

REACTIONS (23)
  - BACK PAIN [None]
  - BONE DEBRIDEMENT [None]
  - BONE DISORDER [None]
  - DYSGEUSIA [None]
  - EPISTAXIS [None]
  - FATIGUE [None]
  - FISTULA [None]
  - HAEMOGLOBIN ABNORMAL [None]
  - HYPERSENSITIVITY [None]
  - NASAL SINUS DRAINAGE [None]
  - NASOPHARYNGITIS [None]
  - NIGHT CRAMPS [None]
  - ORAL PAIN [None]
  - ORAL SURGERY [None]
  - OSTEOMYELITIS [None]
  - OSTEONECROSIS [None]
  - PAIN [None]
  - PAIN IN JAW [None]
  - PARAESTHESIA [None]
  - PURULENT DISCHARGE [None]
  - PYREXIA [None]
  - SINUSITIS [None]
  - TRIGGER FINGER [None]
